FAERS Safety Report 5669653-4 (Version None)
Quarter: 2008Q1

REPORT INFORMATION
  Report Type: 
  Country: None (occurrence: None)
  Receive Date: 20080317
  Receipt Date: 20080306
  Transmission Date: 20080703
  Serious: Yes (Death, Hospitalization)
  Sender: FDA-Public Use
  Company Number: ES-ROCHE-551554

PATIENT
  Age: 70 Year
  Sex: Male

DRUGS (2)
  1. CAPECITABINE [Suspect]
     Route: 048
     Dates: start: 20060208, end: 20060911
  2. MAYGACE [Concomitant]
     Dates: start: 20060710, end: 20060910

REACTIONS (1)
  - INTESTINAL OBSTRUCTION [None]
